FAERS Safety Report 9301119 (Version 1)
Quarter: 2013Q2

REPORT INFORMATION
  Report Type: Spontaneous
  Country: US (occurrence: US)
  Receive Date: 20130521
  Receipt Date: 20130521
  Transmission Date: 20140414
  Serious: Yes (Hospitalization)
  Sender: FDA-Public Use
  Company Number: US-GLAXOSMITHKLINE-A0791265A

PATIENT
  Age: 34 Year
  Sex: Male

DRUGS (1)
  1. AVANDIA [Suspect]
     Indication: TYPE 2 DIABETES MELLITUS
     Route: 065
     Dates: start: 200411, end: 200512

REACTIONS (6)
  - Pain [Unknown]
  - Heart rate irregular [Unknown]
  - Atrial flutter [Unknown]
  - Chest pain [Unknown]
  - Dyspnoea [Unknown]
  - Decreased activity [Unknown]
